FAERS Safety Report 9765063 (Version 1)
Quarter: 2013Q4

REPORT INFORMATION
  Report Type: Spontaneous
  Country: JP (occurrence: JP)
  Receive Date: 20131217
  Receipt Date: 20131217
  Transmission Date: 20140711
  Serious: Yes (Hospitalization, Other)
  Sender: FDA-Public Use
  Company Number: JP-MERCK-1312JPN006347

PATIENT
  Age: 75 Year
  Sex: Male

DRUGS (2)
  1. GLACTIV [Suspect]
     Indication: TYPE 2 DIABETES MELLITUS
     Dosage: 50 MG, QD
     Route: 048
  2. GEMCITABINE [Suspect]
     Indication: CHOLANGIOCARCINOMA
     Route: 042

REACTIONS (7)
  - Renal impairment [Unknown]
  - Malaise [Unknown]
  - Decreased appetite [Unknown]
  - Gastritis [Unknown]
  - C-reactive protein increased [Unknown]
  - Hyperglycaemia [Unknown]
  - Abdominal pain upper [Unknown]
